FAERS Safety Report 25440327 (Version 1)
Quarter: 2025Q2

REPORT INFORMATION
  Report Type: Spontaneous
  Country: US (occurrence: US)
  Receive Date: 20250616
  Receipt Date: 20250616
  Transmission Date: 20250716
  Serious: Yes (Other)
  Sender: PFIZER
  Company Number: US-PFIZER INC-202500117716

PATIENT
  Age: 34 Year
  Sex: Male

DRUGS (5)
  1. HYDROXYZINE PAMOATE [Suspect]
     Active Substance: HYDROXYZINE PAMOATE
     Indication: Generalised anxiety disorder
  2. LORAZEPAM [Suspect]
     Active Substance: LORAZEPAM
     Indication: Generalised anxiety disorder
     Dosage: 0.5 MG, 3X/DAY AS NEEDED
  3. ZIPRASIDONE [Concomitant]
     Active Substance: ZIPRASIDONE
     Indication: Generalised anxiety disorder
     Dosage: 20 MG, 2X/DAY
  4. ZIPRASIDONE [Concomitant]
     Active Substance: ZIPRASIDONE
     Dosage: 40 MG, 2X/DAY
  5. BUSPIRONE [Concomitant]
     Active Substance: BUSPIRONE HYDROCHLORIDE
     Indication: Generalised anxiety disorder
     Dosage: 15 MG, 2X/DAY OVER 2 MONTHS

REACTIONS (2)
  - Drug ineffective [Unknown]
  - Condition aggravated [Unknown]
